FAERS Safety Report 7287345-5 (Version None)
Quarter: 2011Q1

REPORT INFORMATION
  Report Type: 
  Country: None (occurrence: None)
  Receive Date: 20110207
  Receipt Date: 20110207
  Transmission Date: 20110831
  Serious: Yes (Other)
  Sender: FDA-Public Use
  Company Number: None

PATIENT
  Sex: Female
  Weight: 117.9352 kg

DRUGS (4)
  1. FEBUXOSTAT 20MG TAKEDA PHARMACEUTICALS [Suspect]
     Indication: HYPERURICAEMIA
     Dosage: 20MG DAILY PO; 10MG DAILY PO
     Route: 046
  2. FEBUXOSTAT 20MG TAKEDA PHARMACEUTICALS [Suspect]
     Indication: GOUT
     Dosage: 20MG DAILY PO; 10MG DAILY PO
     Route: 046
  3. FEBUXOSTAT 20MG TAKEDA PHARMACEUTICALS [Suspect]
     Indication: HYPERURICAEMIA
     Dosage: 20MG DAILY PO; 10MG DAILY PO
     Route: 046
  4. FEBUXOSTAT 20MG TAKEDA PHARMACEUTICALS [Suspect]
     Indication: GOUT
     Dosage: 20MG DAILY PO; 10MG DAILY PO
     Route: 046

REACTIONS (1)
  - BLOOD CREATININE INCREASED [None]
